FAERS Safety Report 23213827 (Version 2)
Quarter: 2023Q4

REPORT INFORMATION
  Report Type: Spontaneous
  Country: ES (occurrence: None)
  Receive Date: 20231121
  Receipt Date: 20231124
  Transmission Date: 20240110
  Serious: Yes (Life-Threatening, Hospitalization)
  Sender: FDA-Public Use
  Company Number: 2023A263254

PATIENT
  Age: 1 Month
  Sex: Female
  Weight: 3.9 kg

DRUGS (1)
  1. BEYFORTUS [Suspect]
     Active Substance: NIRSEVIMAB-ALIP
     Indication: Respiratory syncytial virus immunisation
     Dates: start: 20231107, end: 20231107

REACTIONS (2)
  - Condition aggravated [Recovering/Resolving]
  - Respiratory syncytial virus bronchiolitis [Recovering/Resolving]

NARRATIVE: CASE EVENT DATE: 20231107
